FAERS Safety Report 5760139-5 (Version None)
Quarter: 2008Q2

REPORT INFORMATION
  Report Type: 
  Country: None (occurrence: None)
  Receive Date: 20080605
  Receipt Date: 20080603
  Transmission Date: 20081010
  Serious: Yes (Hospitalization)
  Sender: FDA-Public Use
  Company Number: JP-BOEHRINGER INGELHEIM GMBH, GERMANY-2008-BP-08712YA

PATIENT
  Age: 80 Year
  Sex: Male

DRUGS (3)
  1. TAMSULOSIN HCL [Suspect]
     Indication: BENIGN PROSTATIC HYPERPLASIA
     Route: 048
     Dates: end: 20080528
  2. PLAVIX [Suspect]
     Route: 048
     Dates: end: 20080528
  3. CANDESARTAN CILEXETIL [Concomitant]
     Dates: end: 20080528

REACTIONS (1)
  - HEPATITIS [None]
